FAERS Safety Report 8039296-6 (Version None)
Quarter: 2012Q1

REPORT INFORMATION
  Report Type: 
  Country: None (occurrence: None)
  Receive Date: 20120111
  Receipt Date: 20111215
  Transmission Date: 20120608
  Serious: No
  Sender: FDA-Public Use
  Company Number: US-AMGEN-USASP2011064923

PATIENT
  Age: 57 Year
  Sex: Female

DRUGS (2)
  1. ENBREL [Suspect]
     Indication: RHEUMATOID ARTHRITIS
     Dosage: 50 MG, QWK
     Dates: start: 20070401
  2. SULFASALAZINE [Concomitant]
     Dosage: 500 MG, QID AT BED TIME

REACTIONS (3)
  - INJECTION SITE PAIN [None]
  - OEDEMA PERIPHERAL [None]
  - HYPOKINESIA [None]
